FAERS Safety Report 5394784-6 (Version None)
Quarter: 2007Q3

REPORT INFORMATION
  Report Type: 
  Country: None (occurrence: None)
  Receive Date: 20070723
  Receipt Date: 20070712
  Transmission Date: 20080115
  Serious: Yes (Hospitalization)
  Sender: FDA-Public Use
  Company Number: US-PFIZER INC-2007058433

PATIENT
  Sex: Female
  Weight: 97 kg

DRUGS (6)
  1. CELEBREX [Suspect]
     Indication: NEURALGIA
     Dates: start: 20010101, end: 20040101
  2. CELEBREX [Suspect]
     Indication: BACK PAIN
  3. BEXTRA [Suspect]
     Indication: NEURALGIA
     Dates: start: 20020101, end: 20030101
  4. BEXTRA [Suspect]
     Indication: BACK PAIN
  5. ACETYLSALICYLIC ACID SRT [Concomitant]
  6. VIOXX [Concomitant]

REACTIONS (2)
  - PAIN [None]
  - THROMBOSIS [None]
